FAERS Safety Report 19793784 (Version 2)
Quarter: 2021Q3

REPORT INFORMATION
  Report Type: Report from Study
  Country: None (occurrence: CO)
  Receive Date: 20210907
  Receipt Date: 20210908
  Transmission Date: 20211014
  Serious: Yes (Other)
  Sender: FDA-Public Use
  Company Number: CO-ABBVIE-21K-036-3964154-00

PATIENT
  Age: 73 Year
  Sex: Female
  Weight: 56 kg

DRUGS (2)
  1. OXYCODONE [Suspect]
     Active Substance: OXYCODONE
     Indication: PAIN
     Dosage: 2 SACHETS PER DAY
     Route: 048
     Dates: start: 2021
  2. VENCLEXTA [Suspect]
     Active Substance: VENETOCLAX
     Indication: CHRONIC LYMPHOCYTIC LEUKAEMIA
     Route: 048
     Dates: start: 20210304

REACTIONS (11)
  - Arthralgia [Not Recovered/Not Resolved]
  - Nausea [Recovered/Resolved]
  - Discouragement [Recovering/Resolving]
  - Constipation [Not Recovered/Not Resolved]
  - Haematochezia [Not Recovered/Not Resolved]
  - Vomiting [Recovered/Resolved]
  - White blood cell count decreased [Not Recovered/Not Resolved]
  - Mobility decreased [Unknown]
  - Muscular weakness [Not Recovered/Not Resolved]
  - Skin laceration [Not Recovered/Not Resolved]
  - Asthenia [Recovering/Resolving]

NARRATIVE: CASE EVENT DATE: 2021
